FAERS Safety Report 5165556-2 (Version None)
Quarter: 2006Q4

REPORT INFORMATION
  Report Type: 
  Country: None (occurrence: None)
  Receive Date: 20061206
  Receipt Date: 20060912
  Transmission Date: 20070319
  Serious: Yes (Hospitalization)
  Sender: FDA-Public Use
  Company Number: US-GLAXOSMITHKLINE-A0619886A

PATIENT
  Age: 70 Year
  Sex: Female

DRUGS (6)
  1. ADVAIR DISKUS 100/50 [Suspect]
     Indication: CHRONIC OBSTRUCTIVE PULMONARY DISEASE
     Dosage: 1PUFF TWICE PER DAY
     Route: 055
     Dates: start: 20060908
  2. ALBUTEROL [Suspect]
     Indication: DRUG USE FOR UNKNOWN INDICATION
     Route: 065
  3. ATROVENT [Concomitant]
  4. FOSAMAX [Concomitant]
  5. DILTIAZEM HCL [Concomitant]
  6. MULTI-VITAMIN [Concomitant]

REACTIONS (5)
  - ARRHYTHMIA [None]
  - ASTHMA [None]
  - COUGH [None]
  - ILL-DEFINED DISORDER [None]
  - PAIN [None]
